FAERS Safety Report 20114431 (Version 1)
Quarter: 2021Q4

REPORT INFORMATION
  Report Type: Spontaneous
  Country: DE (occurrence: DE)
  Receive Date: 20211125
  Receipt Date: 20211125
  Transmission Date: 20220303
  Serious: Yes (Hospitalization, Other)
  Sender: FDA-Public Use
  Company Number: None

PATIENT
  Age: 62 Year
  Sex: Male

DRUGS (12)
  1. CLOZAPINE [Suspect]
     Active Substance: CLOZAPINE
     Dosage: 275-300 MG PO
     Route: 050
     Dates: start: 20210101, end: 20210103
  2. CLOZAPINE [Suspect]
     Active Substance: CLOZAPINE
     Route: 050
     Dates: start: 20210104, end: 20210118
  3. CLOZAPINE [Suspect]
     Active Substance: CLOZAPINE
     Dosage: 0-275 MG
     Route: 050
     Dates: start: 20201221, end: 20201231
  4. ESOMEPRAZOLE [Suspect]
     Active Substance: ESOMEPRAZOLE
     Route: 050
     Dates: start: 20201231, end: 20210131
  5. LORAZEPAM [Concomitant]
     Active Substance: LORAZEPAM
     Dosage: FOR SOME TIME
     Route: 048
     Dates: end: 20210102
  6. LORAZEPAM [Concomitant]
     Active Substance: LORAZEPAM
     Dosage: IN TOTAL
     Route: 048
     Dates: start: 20210103, end: 20210103
  7. LORAZEPAM [Concomitant]
     Active Substance: LORAZEPAM
     Dosage: AB 11.01.2021: 3 MG BIS AUF WEITERES
     Route: 048
     Dates: start: 20210104, end: 20210110
  8. CERTOPARIN SODIUM [Concomitant]
     Active Substance: CERTOPARIN SODIUM
     Dosage: UNTIL FURTHER NOTICE.
     Dates: start: 20201215
  9. BUPROPION [Concomitant]
     Active Substance: BUPROPION
     Dosage: UNTIL FURTHER NOTICE.
     Route: 048
     Dates: start: 20201221
  10. IBUPROFEN [Suspect]
     Active Substance: IBUPROFEN
     Route: 050
     Dates: start: 20201231, end: 20210201
  11. OXYCODONE [Concomitant]
     Active Substance: OXYCODONE
     Route: 048
     Dates: start: 20201231, end: 20210111
  12. OXYCODONE [Concomitant]
     Active Substance: OXYCODONE
     Dosage: FROM 12.01.2021 15 MG UNTIL FURTHER NOTICE.
     Route: 048
     Dates: start: 20210112

REACTIONS (2)
  - Neutropenia [Recovered/Resolved]
  - Leukopenia [Recovered/Resolved]

NARRATIVE: CASE EVENT DATE: 20210105
